FAERS Safety Report 23753805 (Version 2)
Quarter: 2024Q2

REPORT INFORMATION
  Report Type: Spontaneous
  Country: JP (occurrence: JP)
  Receive Date: 20240417
  Receipt Date: 20240501
  Transmission Date: 20240716
  Serious: Yes (Other)
  Sender: FDA-Public Use
  Company Number: JP-Eisai-202400506_LEN-TMC_P_1

PATIENT

DRUGS (1)
  1. LENVIMA [Suspect]
     Active Substance: LENVATINIB
     Indication: Thymic carcinoma
     Dosage: UNKNOWN DOSE AND FREQUENCY
     Route: 048

REACTIONS (7)
  - Tubulointerstitial nephritis [Unknown]
  - Cardiac tamponade [Recovering/Resolving]
  - Oedema [Recovering/Resolving]
  - Proteinuria [Unknown]
  - Pericarditis malignant [Recovering/Resolving]
  - Hypertension [Recovered/Resolved]
  - Hypothyroidism [Recovered/Resolved]
